FAERS Safety Report 4702248-5 (Version None)
Quarter: 2005Q2

REPORT INFORMATION
  Report Type: 
  Country: None (occurrence: None)
  Receive Date: 20050629
  Receipt Date: 20050321
  Transmission Date: 20051028
  Serious: No
  Sender: FDA-Public Use
  Company Number: US-BRISTOL-MYERS SQUIBB COMPANY-12904819

PATIENT
  Age: 44 Year
  Sex: Male

DRUGS (4)
  1. REYATAZ [Suspect]
  2. TENOFOVIR [Concomitant]
  3. RITONAVIR [Concomitant]
  4. COMBIVIR [Concomitant]

REACTIONS (1)
  - CHOLECYSTITIS ACUTE [None]
